FAERS Safety Report 6011453-X (Version None)
Quarter: 2008Q4

REPORT INFORMATION
  Report Type: 
  Country: None (occurrence: None)
  Receive Date: 20081218
  Receipt Date: 20041102
  Transmission Date: 20090506
  Serious: Yes (Death, Hospitalization, Other)
  Sender: FDA-Public Use
  Company Number: US-ROCHE-385407

PATIENT
  Sex: Female
  Weight: 66.7 kg

DRUGS (11)
  1. PEG-INTERFERON ALFA 2A (RO 25-8310) [Suspect]
     Route: 058
     Dates: start: 20030529
  2. PEG-INTERFERON ALFA 2A (RO 25-8310) [Suspect]
     Route: 058
     Dates: end: 20040907
  3. ADDERALL XR 20 [Concomitant]
     Dates: start: 20040513
  4. DEPO-PROVERA [Concomitant]
     Dates: start: 20010101
  5. FLONASE [Concomitant]
     Dates: start: 20030523
  6. FLUOXETINE [Concomitant]
     Dates: start: 20030710, end: 20040301
  7. MILK THISTLE [Concomitant]
     Dates: start: 20010101
  8. GREEN TEA [Concomitant]
     Dates: start: 20020101
  9. VITAMIN B COMPLEX CAP [Concomitant]
  10. FISH OIL [Concomitant]
     Dates: start: 20010101
  11. ALPRAZOLAM [Concomitant]
     Dates: start: 20000101

REACTIONS (3)
  - DEATH [None]
  - RASH [None]
  - RENAL FAILURE [None]
